FAERS Safety Report 8975743 (Version 1)
Quarter: 2012Q4

REPORT INFORMATION
  Report Type: 
  Country: US (occurrence: US)
  Receive Date: 20121219
  Receipt Date: 20121219
  Transmission Date: 20130627
  Serious: No
  Sender: FDA-Public Use
  Company Number: US-AMGEN-USASP2012070076

PATIENT
  Age: 56 Year
  Sex: Female

DRUGS (6)
  1. PROLIA [Suspect]
     Indication: OSTEOPOROSIS
     Dosage: 60 mg, UNK
     Dates: start: 20120420
  2. MULTIVITAMIN [Concomitant]
     Dosage: UNK
  3. CALCIUM WITH VITAMIN D [Concomitant]
     Dosage: 600 mg, bid
  4. CRESTOR [Concomitant]
     Dosage: 10 mg, qd
  5. FISH OIL [Concomitant]
     Dosage: 1000 mg, bid
  6. MELATONIN [Concomitant]
     Indication: SLEEP DISORDER
     Dosage: UNK

REACTIONS (1)
  - Blepharitis [Not Recovered/Not Resolved]
